FAERS Safety Report 7962232-5 (Version None)
Quarter: 2011Q4

REPORT INFORMATION
  Report Type: 
  Country: None (occurrence: None)
  Receive Date: 20111207
  Receipt Date: 20111201
  Transmission Date: 20120403
  Serious: Yes (Death, Hospitalization, Other)
  Sender: FDA-Public Use
  Company Number: PHHY2011US106011

PATIENT
  Age: 57 Year
  Sex: Male

DRUGS (4)
  1. AZATHIOPRINE [Concomitant]
     Indication: RENAL TRANSPLANT
  2. PREDNISONE [Concomitant]
     Indication: RENAL TRANSPLANT
  3. CYCLOSPORINE [Suspect]
     Indication: RENAL TRANSPLANT
     Dates: start: 19890101
  4. ACITRETIN [Concomitant]

REACTIONS (8)
  - METASTASES TO THE MEDIASTINUM [None]
  - METASTASES TO LUNG [None]
  - SKIN CANCER [None]
  - METASTATIC NEOPLASM [None]
  - MALIGNANT FIBROUS HISTIOCYTOMA RECURRENT [None]
  - METASTASES TO BONE [None]
  - MALIGNANT FIBROUS HISTIOCYTOMA [None]
  - METASTASES TO ABDOMINAL CAVITY [None]
